FAERS Safety Report 16005545 (Version 2)
Quarter: 2019Q1

REPORT INFORMATION
  Report Type: Spontaneous
  Country: HU (occurrence: HU)
  Receive Date: 20190226
  Receipt Date: 20190319
  Transmission Date: 20190418
  Serious: Yes (Death, Other)
  Sender: FDA-Public Use
  Company Number: PHHY2019HU043479

PATIENT
  Age: 60 Year
  Sex: Female

DRUGS (5)
  1. LEVOFLOXACIN. [Suspect]
     Active Substance: LEVOFLOXACIN
     Indication: GASTROENTERITIS
     Dosage: UNK
     Route: 065
  2. LACTATED RINGERS SOLUTION [Suspect]
     Active Substance: CALCIUM CHLORIDE\POTASSIUM CHLORIDE\SODIUM CHLORIDE\SODIUM LACTATE
     Indication: GASTROENTERITIS
     Dosage: UNK
     Route: 041
  3. VENLAFAXINE [Concomitant]
     Active Substance: VENLAFAXINE HYDROCHLORIDE
     Indication: DEPRESSION
     Dosage: UNK
     Route: 065
  4. LACTATED RINGERS SOLUTION [Concomitant]
     Active Substance: CALCIUM CHLORIDE\POTASSIUM CHLORIDE\SODIUM CHLORIDE\SODIUM LACTATE
     Indication: HYPONATRAEMIA
     Route: 065
  5. NACL [Concomitant]
     Active Substance: SODIUM CHLORIDE
     Indication: HYPONATRAEMIA
     Route: 065

REACTIONS (11)
  - Brain herniation [Fatal]
  - Coma [Not Recovered/Not Resolved]
  - Confusional state [Not Recovered/Not Resolved]
  - Cardiac arrest [Fatal]
  - Azotaemia [Recovered/Resolved]
  - Inappropriate antidiuretic hormone secretion [Unknown]
  - Renal failure [Unknown]
  - Hyponatraemia [Recovered/Resolved]
  - Drug ineffective [Unknown]
  - Respiratory arrest [Fatal]
  - Brain oedema [Fatal]
